FAERS Safety Report 24236079 (Version 1)
Quarter: 2024Q3

REPORT INFORMATION
  Report Type: Spontaneous
  Country: GB (occurrence: GB)
  Receive Date: 20240822
  Receipt Date: 20240822
  Transmission Date: 20241017
  Serious: Yes (Other)
  Sender: AUROBINDO
  Company Number: GB-MHRA-TPP34856533C8905331YC1723453255287

PATIENT
  Age: 58 Year
  Sex: Female
  Weight: 80 kg

DRUGS (12)
  1. NAPROXEN [Suspect]
     Active Substance: NAPROXEN
     Indication: Ill-defined disorder
     Dosage: UNK
     Route: 065
     Dates: start: 20240806
  2. ATORVASTATIN [Concomitant]
     Active Substance: ATORVASTATIN
     Indication: Ill-defined disorder
     Dosage: 1 DOSAGE FORM, DAILY (TAKE ONE DAILY)
     Route: 065
     Dates: start: 20240227
  3. AMLODIPINE [Concomitant]
     Active Substance: AMLODIPINE BESYLATE
     Indication: Ill-defined disorder
     Dosage: 1 DOSAGE FORM, DAILY (TAKE ONE TABLET DAILY)
     Route: 065
     Dates: start: 20240806
  4. CANDESARTAN [Concomitant]
     Active Substance: CANDESARTAN
     Indication: Ill-defined disorder
     Dosage: 1 DOSAGE FORM, DAILY (TAKE ONE ONCE DAILY)
     Route: 065
     Dates: start: 20231228
  5. CLARITHROMYCIN [Concomitant]
     Active Substance: CLARITHROMYCIN
     Indication: Ill-defined disorder
     Dosage: UNK UNK, TWO TIMES A DAY (TAKE ONE TWICE A DAY FOR 7 DAYS)
     Route: 065
     Dates: start: 20240729
  6. DYMISTA [Concomitant]
     Active Substance: AZELASTINE HYDROCHLORIDE\FLUTICASONE PROPIONATE
     Indication: Ill-defined disorder
     Dosage: UNK UNK, TWO TIMES A DAY (ONE PUFF TWICE DAILY INTO EACH NOSTRIL)
     Route: 065
     Dates: start: 20230811
  7. FEXOFENADINE [Concomitant]
     Active Substance: FEXOFENADINE HYDROCHLORIDE
     Indication: Ill-defined disorder
     Dosage: 1 DOSAGE FORM, DAILY (TAKE ONE DAILY)
     Route: 065
     Dates: start: 20240520
  8. NAPROXEN [Concomitant]
     Active Substance: NAPROXEN
     Indication: Ill-defined disorder
     Dosage: 1 DOSAGE FORM, TWO TIMES A DAY (TAKE ONE TWICE DAILY AFTER FOOD)
     Route: 065
     Dates: start: 20240726
  9. OMEPRAZOLE [Concomitant]
     Active Substance: OMEPRAZOLE
     Indication: Ill-defined disorder
     Dosage: 1 DOSAGE FORM (TAKE ONE BEFORE BREAKFAST)
     Route: 065
     Dates: start: 20240726
  10. SERTRALINE [Concomitant]
     Active Substance: SERTRALINE HYDROCHLORIDE
     Indication: Ill-defined disorder
     Dosage: UNK UNK, AS DIRECTED (USE AS DIRECTED)
     Route: 065
     Dates: start: 20240129
  11. SOLIFENACIN [Concomitant]
     Active Substance: SOLIFENACIN
     Indication: Ill-defined disorder
     Dosage: 1 DOSAGE FORM, TWO TIMES A DAY (TAKE ONE TABLET TWICE DAILY)
     Route: 065
     Dates: start: 20240103
  12. Vagirux [Concomitant]
     Indication: Ill-defined disorder
     Dosage: UNK UNK, AS DIRECTED (INSERT ONE AS DIRECTED)
     Route: 065
     Dates: start: 20230505

REACTIONS (3)
  - Lip swelling [Recovered/Resolved]
  - Blister [Recovered/Resolved]
  - Pruritus [Recovered/Resolved]

NARRATIVE: CASE EVENT DATE: 20240812
